FAERS Safety Report 7049432 (Version 2)
Quarter: 2013Q4

REPORT INFORMATION
  Report Type: Spontaneous
  Country: US (occurrence: None)
  Receive Date: 20090702
  Receipt Date: 20131023
  Transmission Date: 20140711
  Serious: Yes (Other)
  Sender: FDA-Public Use
  Company Number: 2009S1004936

PATIENT
  Age: 55 Year
  Sex: Male
  Weight: 114.31 kg

DRUGS (3)
  1. SODIUM PHOSPHATE, DIBASIC\SODIUM PHOSPHATE, MONOBASIC, ANHYDROUS [Suspect]
     Indication: COLONOSCOPY
     Dosage: 90ML, 2 IN 24 HOURS, ORAL
     Route: 048
     Dates: start: 20070729, end: 20070729
  2. LISINOPRIL [Concomitant]
  3. HYDROCHLOROTHIAZIDE [Concomitant]

REACTIONS (3)
  - Dysgeusia [None]
  - Renal failure acute [None]
  - Nephrogenic anaemia [None]
